FAERS Safety Report 4501360-3 (Version None)
Quarter: 2004Q3

REPORT INFORMATION
  Report Type: 
  Country: None (occurrence: None)
  Receive Date: 20040928
  Receipt Date: 20040715
  Transmission Date: 20050211
  Serious: No
  Sender: FDA-Public Use
  Company Number: 04P-163-0267123-00

PATIENT
  Age: 70 Year
  Sex: Female

DRUGS (18)
  1. HUMIRA [Suspect]
     Indication: RHEUMATOID ARTHRITIS
     Dosage: 40 MG, 1 IN 2 WK, SUBCUTANEOUS
     Route: 058
     Dates: start: 20031022, end: 20040415
  2. ADVAIR [Concomitant]
  3. ACETYLSALICYLIC ACID [Concomitant]
  4. ATENOLOL [Concomitant]
  5. CALCIUM [Concomitant]
  6. MULTI-VITAMINS [Concomitant]
  7. PROPACET 100 [Concomitant]
  8. ALENDRONATE SODIUM [Concomitant]
  9. FUROSEMIDE [Concomitant]
  10. HYDROXYCHLOROQUINE PHOSPHATE [Concomitant]
  11. IBUPROFEN [Concomitant]
  12. LEVOTHYROID [Concomitant]
  13. AMLODIPINE BESYLATE [Concomitant]
  14. POTASSIUM [Concomitant]
  15. PREDNISONE [Concomitant]
  16. SULFASALAZINE [Concomitant]
  17. ERGOCALCIFEROL [Concomitant]
  18. ZYRTEC [Concomitant]

REACTIONS (1)
  - RASH [None]
